FAERS Safety Report 6266899-1 (Version None)
Quarter: 2009Q3

REPORT INFORMATION
  Report Type: 
  Country: None (occurrence: None)
  Receive Date: 20090714
  Receipt Date: 20090706
  Transmission Date: 20100115
  Serious: Yes (Other)
  Sender: FDA-Public Use
  Company Number: PHHY2009DE20843

PATIENT
  Sex: Male
  Weight: 134 kg

DRUGS (10)
  1. ALISKIREN ALI+ [Suspect]
     Indication: HYPERTENSION
     Dosage: 150 MG/DAY
     Dates: start: 20081113, end: 20081215
  2. ZANERIL [Concomitant]
     Indication: HYPERTENSION
     Dosage: 1 DF, QD
     Dates: start: 20080101, end: 20080508
  3. BESOBETA COMP [Concomitant]
     Indication: HYPERTENSION
     Dosage: 0.5 DF, UNK
     Dates: start: 20060101, end: 20080508
  4. DOXAGAMMA [Concomitant]
     Dosage: 1 DF, BID
     Dates: end: 20071101
  5. CITALOPRAM HYDROBROMIDE [Concomitant]
     Dosage: 1 DF, BID
     Dates: end: 20070727
  6. METFORMIN HCL [Concomitant]
     Indication: DIABETES MELLITUS
     Dosage: 1000 MG
     Dates: end: 20070727
  7. GLUCOBAY [Concomitant]
     Dosage: 1 DF, BID
  8. DURAFENAT [Concomitant]
     Dosage: 1 DF, QD
  9. ASPIRIN [Concomitant]
     Dosage: 1 DF, QD
     Dates: end: 20070727
  10. ENALAPRIL W/HYDROCHLOROTHIAZIDE [Concomitant]

REACTIONS (2)
  - HYPERTENSION [None]
  - TACHYCARDIA [None]
